FAERS Safety Report 16247121 (Version 10)
Quarter: 2023Q2

REPORT INFORMATION
  Report Type: Other
  Country: DE (occurrence: None)
  Receive Date: 20190427
  Receipt Date: 20230628
  Transmission Date: 20230721
  Serious: Yes (Hospitalization)
  Sender: FDA-Public Use
  Company Number: DE-ROCHE-2129945

PATIENT
  Age: 42 Year
  Sex: Female

DRUGS (12)
  1. OCREVUS [Suspect]
     Active Substance: OCRELIZUMAB
     Indication: Relapsing-remitting multiple sclerosis
     Dosage: 600 MG 182 DAYS?600 MG 193 DAYS
     Route: 042
     Dates: start: 20180322
  2. OCREVUS [Suspect]
     Active Substance: OCRELIZUMAB
     Route: 042
     Dates: start: 20180920
  3. OCREVUS [Suspect]
     Active Substance: OCRELIZUMAB
     Dosage: NEXT SUBSEQUENT INFUSION: 21/SEP/2020
     Route: 042
     Dates: start: 20191007
  4. OCREVUS [Suspect]
     Active Substance: OCRELIZUMAB
     Route: 042
     Dates: start: 20191007
  5. OCREVUS [Suspect]
     Active Substance: OCRELIZUMAB
     Route: 042
     Dates: start: 20200921
  6. OCREVUS [Suspect]
     Active Substance: OCRELIZUMAB
     Dosage: 17/APR/2023 (DATE OF THE 10TH MAINTENANCE DOSE)
     Route: 042
  7. CORTISONE [Suspect]
     Active Substance: CORTISONE
     Indication: Product used for unknown indication
     Route: 065
  8. QUETIAPINE [Concomitant]
     Active Substance: QUETIAPINE
     Dosage: AT NIGHT
     Route: 048
  9. LEVOTHYROXINE SODIUM [Concomitant]
     Active Substance: LEVOTHYROXINE SODIUM
  10. VITAMIN D3 [Concomitant]
     Active Substance: CHOLECALCIFEROL
  11. TROSPIUM CHLORIDE [Concomitant]
     Active Substance: TROSPIUM CHLORIDE
     Dosage: 1-0-1
  12. DULOXETINE [Concomitant]
     Active Substance: DULOXETINE

REACTIONS (15)
  - Uterine leiomyoma [Unknown]
  - Hot flush [Recovered/Resolved]
  - Eczema [Recovered/Resolved]
  - Eyelids pruritus [Recovered/Resolved]
  - Throat irritation [Recovered/Resolved]
  - Fatigue [Recovered/Resolved]
  - Alopecia [Recovered/Resolved]
  - Influenza [Recovered/Resolved]
  - Micturition disorder [Recovered/Resolved]
  - Sensation of foreign body [Recovered/Resolved]
  - Goitre [Recovered/Resolved]
  - Insomnia [Recovered/Resolved]
  - Fatigue [Recovered/Resolved]
  - Depressed mood [Not Recovered/Not Resolved]
  - Fatigue [Recovered/Resolved]

NARRATIVE: CASE EVENT DATE: 20180322
